FAERS Safety Report 14258763 (Version 2)
Quarter: 2017Q4

REPORT INFORMATION
  Report Type: Spontaneous
  Country: US (occurrence: US)
  Receive Date: 20171207
  Receipt Date: 20171209
  Transmission Date: 20180321
  Serious: Yes (Disabling, Other)
  Sender: FDA-Public Use
  Company Number: US-CIPLA LTD.-2017US21476

PATIENT

DRUGS (4)
  1. CARBOPLATIN. [Suspect]
     Active Substance: CARBOPLATIN
     Indication: METASTATIC UTERINE CANCER
     Dosage: UNK
     Route: 065
     Dates: end: 201104
  2. MEGESTROL ACETATE. [Suspect]
     Active Substance: MEGESTROL ACETATE
     Dosage: UNK
  3. PACLITAXEL. [Suspect]
     Active Substance: PACLITAXEL
     Indication: METASTATIC UTERINE CANCER
     Dosage: UNK
     Route: 065
     Dates: end: 201104
  4. MEGESTROL ACETATE. [Suspect]
     Active Substance: MEGESTROL ACETATE
     Indication: METASTATIC UTERINE CANCER
     Dosage: 80 MG, BID
     Route: 065

REACTIONS (4)
  - Hemiplegia [Not Recovered/Not Resolved]
  - Adrenal insufficiency [Unknown]
  - Weight increased [Recovering/Resolving]
  - Cerebrovascular accident [Unknown]
